FAERS Safety Report 6460149-9 (Version None)
Quarter: 2009Q4

REPORT INFORMATION
  Report Type: 
  Country: None (occurrence: None)
  Receive Date: 20091129
  Receipt Date: 20091120
  Transmission Date: 20100525
  Serious: Yes (Life-Threatening, Hospitalization, Other)
  Sender: FDA-Public Use
  Company Number: FR-ELI_LILLY_AND_COMPANY-FR200911005185

PATIENT
  Sex: Male

DRUGS (10)
  1. ALIMTA [Suspect]
     Indication: SMALL CELL LUNG CANCER STAGE UNSPECIFIED
     Route: 042
     Dates: start: 20090907, end: 20090928
  2. CISPLATIN [Concomitant]
     Indication: SMALL CELL LUNG CANCER STAGE UNSPECIFIED
     Route: 042
     Dates: start: 20090907, end: 20090928
  3. EMEND [Concomitant]
     Indication: PROPHYLAXIS OF NAUSEA AND VOMITING
     Dosage: 125 MG, UNK
     Route: 048
     Dates: start: 20090907, end: 20090928
  4. ZOPHREN [Concomitant]
     Indication: PROPHYLAXIS OF NAUSEA AND VOMITING
     Dosage: 8 MG, UNKNOWN
     Route: 042
     Dates: start: 20090907, end: 20090928
  5. SOLU-MEDROL [Concomitant]
     Dosage: 60 MG, UNK
     Route: 042
     Dates: start: 20090907, end: 20090928
  6. ZOPHREN [Concomitant]
     Dosage: 60 MG, UNK
     Route: 048
     Dates: start: 20090907, end: 20090928
  7. TEMERIT                            /01339101/ [Concomitant]
     Indication: HYPERTENSION
     Dosage: 5 MG, DAILY (1/D)
     Route: 048
     Dates: start: 20090701, end: 20090901
  8. SOLUPRED [Concomitant]
     Dosage: 50 MG, UNK
     Route: 048
     Dates: start: 20090907, end: 20090928
  9. FOLIC ACID [Concomitant]
     Route: 048
     Dates: start: 20090901, end: 20090928
  10. VITAMIN B 12 LICHTENSTEIN [Concomitant]
     Dosage: 1 MG, UNK
     Route: 030
     Dates: start: 20090101, end: 20090928

REACTIONS (8)
  - ACUTE CORONARY SYNDROME [None]
  - CARDIO-RESPIRATORY ARREST [None]
  - HYPERHIDROSIS [None]
  - HYPOTENSION [None]
  - NAUSEA [None]
  - OXYGEN SATURATION DECREASED [None]
  - TORSADE DE POINTES [None]
  - VENTRICULAR FIBRILLATION [None]
